FAERS Safety Report 16773532 (Version 1)
Quarter: 2019Q3

REPORT INFORMATION
  Report Type: Spontaneous
  Country: US (occurrence: US)
  Receive Date: 20190904
  Receipt Date: 20190904
  Transmission Date: 20191005
  Serious: Yes (Hospitalization)
  Sender: FDA-Public Use
  Company Number: US-SHIRE-US201928518

PATIENT
  Sex: Female

DRUGS (1)
  1. GATTEX [Suspect]
     Active Substance: TEDUGLUTIDE\WATER
     Indication: SHORT-BOWEL SYNDROME
     Dosage: 2.75 MILLIGRAM, 1X/DAY:QD
     Route: 058

REACTIONS (7)
  - Vomiting [Unknown]
  - Chills [Unknown]
  - Diarrhoea [Unknown]
  - Flank pain [Unknown]
  - Cough [Unknown]
  - Dehydration [Unknown]
  - Asthenia [Unknown]
